FAERS Safety Report 8554447-2 (Version None)
Quarter: 2012Q3

REPORT INFORMATION
  Report Type: 
  Country: None (occurrence: None)
  Receive Date: 20120731
  Receipt Date: 20120723
  Transmission Date: 20120928
  Serious: Yes (Disabling, Other)
  Sender: FDA-Public Use
  Company Number: US-009507513-1207USA010804

PATIENT

DRUGS (13)
  1. ASPIRIN [Concomitant]
  2. SPIRIVA [Concomitant]
  3. ASCORBIC ACID [Concomitant]
  4. LEVAQUIN [Suspect]
  5. VITAMIN D (UNSPECIFIED) [Concomitant]
  6. VITAMIN E [Concomitant]
  7. ALBUTEROL [Concomitant]
  8. ASMANEX TWISTHALER [Concomitant]
  9. ALLOPURINOL [Concomitant]
  10. ZOCOR [Suspect]
     Route: 048
  11. MULTI-VITAMINS [Concomitant]
  12. FORADIL [Concomitant]
  13. DALIRESP [Suspect]
     Route: 048

REACTIONS (8)
  - DRUG INEFFECTIVE [None]
  - MUSCULAR WEAKNESS [None]
  - WEIGHT DECREASED [None]
  - OEDEMA PERIPHERAL [None]
  - FREQUENT BOWEL MOVEMENTS [None]
  - GASTROOESOPHAGEAL REFLUX DISEASE [None]
  - ASTHENIA [None]
  - SWELLING FACE [None]
